FAERS Safety Report 9667868 (Version 1)
Quarter: 2013Q4

REPORT INFORMATION
  Report Type: Spontaneous
  Country: NO (occurrence: NO)
  Receive Date: 20131104
  Receipt Date: 20131104
  Transmission Date: 20140711
  Serious: Yes (Death, Other)
  Sender: FDA-Public Use
  Company Number: NO-PFIZER INC-2013312265

PATIENT
  Age: 51 Year
  Sex: Male

DRUGS (3)
  1. CHAMPIX [Suspect]
     Indication: SMOKING CESSATION THERAPY
     Dosage: 1 MG, 2X/DAY
     Route: 048
     Dates: start: 20130314
  2. VIAGRA [Concomitant]
     Indication: ERECTILE DYSFUNCTION
     Dosage: 50 MG, WHEN NEEDED
     Route: 048
     Dates: start: 20130605
  3. IMOVANE [Concomitant]
     Indication: INSOMNIA
     Dosage: 7.5 MG, WHEN NEEDED FOR SLEEP
     Route: 048
     Dates: start: 20130531

REACTIONS (8)
  - Completed suicide [Fatal]
  - Depression [Unknown]
  - Decreased appetite [Unknown]
  - Depressed mood [Unknown]
  - Sleep disorder [Unknown]
  - Asthenia [Unknown]
  - Negative thoughts [Unknown]
  - Anger [Unknown]
